FAERS Safety Report 18248246 (Version 1)
Quarter: 2020Q3

REPORT INFORMATION
  Report Type: Spontaneous
  Country: US (occurrence: US)
  Receive Date: 20200909
  Receipt Date: 20200909
  Transmission Date: 20201103
  Serious: No
  Sender: FDA-Public Use
  Company Number: US-LEXICON PHARMACEUTICALS, INC-20-1606-00562

PATIENT
  Age: 64 Year
  Sex: Male

DRUGS (2)
  1. XERMELO [Suspect]
     Active Substance: TELOTRISTAT ETHYL
     Indication: CARCINOID TUMOUR
     Dates: start: 20200610
  2. SOMATULINE [Concomitant]
     Active Substance: LANREOTIDE ACETATE

REACTIONS (2)
  - Oral surgery [Unknown]
  - Abdominal distension [Unknown]
